FAERS Safety Report 10784036 (Version 1)
Quarter: 2015Q1

REPORT INFORMATION
  Report Type: Spontaneous
  Country: US (occurrence: US)
  Receive Date: 20150211
  Receipt Date: 20150211
  Transmission Date: 20150721
  Serious: No
  Sender: FDA-Public Use
  Company Number: US-BRISTOL-MYERS SQUIBB COMPANY-BMS-2015-008118

PATIENT
  Age: 54 Year
  Sex: Female

DRUGS (1)
  1. ERBITUX [Suspect]
     Active Substance: CETUXIMAB
     Indication: COLON CANCER METASTATIC
     Dosage: N/A
     Route: 065
     Dates: start: 201410

REACTIONS (5)
  - Eyelid oedema [Unknown]
  - Onychomadesis [Unknown]
  - Skin irritation [Unknown]
  - Acne [Unknown]
  - Eyelids pruritus [Unknown]

NARRATIVE: CASE EVENT DATE: 201412
